FAERS Safety Report 10348261 (Version 3)
Quarter: 2015Q1

REPORT INFORMATION
  Report Type: Spontaneous
  Country: JP (occurrence: JP)
  Receive Date: 20140729
  Receipt Date: 20150115
  Transmission Date: 20150720
  Serious: Yes (Other)
  Sender: FDA-Public Use
  Company Number: JP-GLAXOSMITHKLINE-B1017872A

PATIENT
  Age: 73 Year
  Sex: Male

DRUGS (3)
  1. ELTROMBOPAG [Suspect]
     Active Substance: ELTROMBOPAG
     Indication: IMMUNE THROMBOCYTOPENIC PURPURA
     Dosage: 12.5 MG, QD
     Dates: start: 20130510, end: 20130630
  2. ELTROMBOPAG [Suspect]
     Active Substance: ELTROMBOPAG
     Dosage: 12.5 MG, QD
     Dates: start: 20130801, end: 20140131
  3. ELTROMBOPAG [Suspect]
     Active Substance: ELTROMBOPAG
     Dosage: 12.5 MG, QOD
     Dates: start: 20140201, end: 20140330

REACTIONS (3)
  - Femoral artery occlusion [Recovered/Resolved]
  - Pain [Unknown]
  - Intermittent claudication [Recovered/Resolved]

NARRATIVE: CASE EVENT DATE: 201306
